FAERS Safety Report 9110864 (Version 1)
Quarter: 2013Q1

REPORT INFORMATION
  Report Type: Spontaneous
  Country: US (occurrence: US)
  Receive Date: 20130219
  Receipt Date: 20130219
  Transmission Date: 20140127
  Serious: No
  Sender: FDA-Public Use
  Company Number: US-BRISTOL-MYERS SQUIBB COMPANY-16971525

PATIENT
  Age: 61 Year
  Sex: Female
  Weight: 63.04 kg

DRUGS (4)
  1. ORENCIA [Suspect]
     Indication: RHEUMATOID ARTHRITIS
     Dosage: 1DF=4VIALS?LAST INFUSION:30AUG2012
     Route: 042
  2. METHOTREXATE [Concomitant]
  3. ZYRTEC [Concomitant]
  4. LEXAPRO [Concomitant]

REACTIONS (4)
  - Ear disorder [Not Recovered/Not Resolved]
  - Erythema [Unknown]
  - Pruritus [Unknown]
  - Pain in extremity [Not Recovered/Not Resolved]
